FAERS Safety Report 17099140 (Version 5)
Quarter: 2021Q3

REPORT INFORMATION
  Report Type: Report from Study
  Country: FR (occurrence: FR)
  Receive Date: 20191202
  Receipt Date: 20210930
  Transmission Date: 20211014
  Serious: Yes (Other)
  Sender: FDA-Public Use
  Company Number: FR-ASTELLAS-2019US047467

PATIENT
  Sex: Male

DRUGS (3)
  1. TACROLIMUS. [Suspect]
     Active Substance: TACROLIMUS
     Indication: IMMUNOSUPPRESSION
     Dosage: 8 (UNITS NOT REPORTED), ONCE DAILY
     Route: 048
     Dates: start: 20170907
  2. SOLUPRED [Concomitant]
     Indication: IMMUNOSUPPRESSANT DRUG THERAPY
     Dosage: 10 UNIT NOT PROVIDED, ONCE DAILY
     Route: 065
     Dates: start: 20170906
  3. CELLCEPT [Concomitant]
     Active Substance: MYCOPHENOLATE MOFETIL\MYCOPHENOLATE MOFETIL HYDROCHLORIDE
     Indication: IMMUNOSUPPRESSANT DRUG THERAPY
     Dosage: 500 UNIT NOT PROVIDED, ONCE DAILY
     Route: 065
     Dates: start: 20171214

REACTIONS (1)
  - New onset diabetes after transplantation [Not Recovered/Not Resolved]

NARRATIVE: CASE EVENT DATE: 20190827
